FAERS Safety Report 7982171-3 (Version None)
Quarter: 2011Q4

REPORT INFORMATION
  Report Type: 
  Country: None (occurrence: None)
  Receive Date: 20111212
  Receipt Date: 20111128
  Transmission Date: 20120403
  Serious: Yes (Death, Life-Threatening, Hospitalization)
  Sender: FDA-Public Use
  Company Number: 2011MA016919

PATIENT
  Sex: Male
  Weight: 69.8539 kg

DRUGS (32)
  1. CEPHALEXIN [Concomitant]
  2. ENULOSE [Concomitant]
  3. MAXIPIME [Concomitant]
  4. MORPHINE [Concomitant]
  5. POTASSIUM [Concomitant]
  6. PSEUDOEPHEDRINE HCL [Concomitant]
  7. SENOKOT [Concomitant]
  8. TEMAZEPAM [Concomitant]
  9. CIPROFLOXACIN [Concomitant]
  10. PIPERACILLIN [Concomitant]
  11. VITAMIN K TAB [Concomitant]
  12. ZOSYN [Concomitant]
  13. LASIX [Concomitant]
  14. AMIODARONE HCL [Concomitant]
  15. ATROVENT [Concomitant]
  16. CALCIUM CARBONATE [Concomitant]
  17. LEVAQUIN [Concomitant]
  18. MIDODRINE HYDROCHLORIDE [Concomitant]
  19. DIGOXIN [Suspect]
     Indication: ATRIAL FIBRILLATION
     Dosage: 0.25 MG;QD;PO
     Route: 048
     Dates: start: 20041001, end: 20080424
  20. FLOMAX [Concomitant]
  21. PREDNISONE TAB [Concomitant]
  22. PROTAMINE SULFATE [Concomitant]
  23. CARDIZEM [Concomitant]
  24. DOXYCYCLINE [Concomitant]
  25. PERCOCET [Concomitant]
  26. APAP TAB [Concomitant]
  27. IPRATROPIUM BROMIDE [Concomitant]
  28. LORAZEPAM [Concomitant]
  29. ALBUTEROL [Concomitant]
  30. ASPIRIN [Concomitant]
  31. CARTIA XT [Concomitant]
  32. MEGESTROL ACETATE [Concomitant]

REACTIONS (44)
  - CARDIAC FAILURE CONGESTIVE [None]
  - BACK PAIN [None]
  - DYSPNOEA [None]
  - UNRESPONSIVE TO STIMULI [None]
  - PULMONARY OEDEMA [None]
  - BLOOD POTASSIUM INCREASED [None]
  - BASAL CELL CARCINOMA [None]
  - DIZZINESS [None]
  - CARDIOMEGALY [None]
  - HYPOTENSION [None]
  - CARDIAC ARREST [None]
  - BOWEL MOVEMENT IRREGULARITY [None]
  - ECONOMIC PROBLEM [None]
  - WEIGHT DECREASED [None]
  - MELAENA [None]
  - DIVERTICULUM [None]
  - HAEMORRHAGE INTRACRANIAL [None]
  - MITRAL VALVE INCOMPETENCE [None]
  - TRICUSPID VALVE INCOMPETENCE [None]
  - AORTIC VALVE INCOMPETENCE [None]
  - LEFT VENTRICULAR HYPERTROPHY [None]
  - CARDIOACTIVE DRUG LEVEL BELOW THERAPEUTIC [None]
  - BLOOD CHLORIDE DECREASED [None]
  - WHITE BLOOD CELL COUNT INCREASED [None]
  - CARDIOGENIC SHOCK [None]
  - PNEUMONIA [None]
  - CARDIOMYOPATHY [None]
  - BLOOD POTASSIUM DECREASED [None]
  - URINARY RETENTION [None]
  - FALL [None]
  - EMBOLISM [None]
  - PULMONARY HYPERTENSION [None]
  - OBSTRUCTION [None]
  - MULTIPLE INJURIES [None]
  - CHRONIC OBSTRUCTIVE PULMONARY DISEASE [None]
  - OXYGEN SUPPLEMENTATION [None]
  - RECTAL HAEMORRHAGE [None]
  - HEAD INJURY [None]
  - ACUTE MYOCARDIAL INFARCTION [None]
  - ATELECTASIS [None]
  - UNEVALUABLE EVENT [None]
  - ATRIAL FIBRILLATION [None]
  - PROSTATOMEGALY [None]
  - BRAIN CONTUSION [None]
